FAERS Safety Report 15165321 (Version 1)
Quarter: 2018Q3

REPORT INFORMATION
  Report Type: Spontaneous
  Country: US (occurrence: US)
  Receive Date: 20180621
  Receipt Date: 20180621
  Transmission Date: 20181010
  Serious: Yes (Death)
  Sender: FDA-Public Use
  Company Number: None

PATIENT
  Age: 70 Year
  Sex: Female
  Weight: 60.8 kg

DRUGS (1)
  1. HEPARIN [Suspect]
     Active Substance: HEPARIN SODIUM
     Indication: PROCOAGULANT THERAPY
     Route: 042
     Dates: start: 20180522

REACTIONS (4)
  - Hypotension [None]
  - Wound secretion [None]
  - Pericardial effusion [None]
  - Cardiac arrest [None]

NARRATIVE: CASE EVENT DATE: 20180522
